FAERS Safety Report 9513644 (Version 1)
Quarter: 2013Q3

REPORT INFORMATION
  Report Type: Spontaneous
  Country: PT (occurrence: PT)
  Receive Date: 20130910
  Receipt Date: 20130910
  Transmission Date: 20140515
  Serious: Yes (Other)
  Sender: FDA-Public Use
  Company Number: PT-VIIV HEALTHCARE LIMITED-B0921434A

PATIENT
  Sex: Male

DRUGS (5)
  1. COMBIVIR [Suspect]
     Indication: HIV INFECTION
     Dosage: 1TAB TWICE PER DAY
     Route: 048
     Dates: start: 20101008, end: 20130829
  2. ENALAPRIL MALEATE + HYDROCHLOROTHIAZIDE [Concomitant]
     Route: 048
  3. ZURCAL [Concomitant]
     Route: 048
  4. METFORMINA [Concomitant]
     Route: 048
  5. ISENTRESS [Concomitant]
     Dosage: 400MG TWICE PER DAY

REACTIONS (3)
  - Asthenia [Unknown]
  - Fatigue [Unknown]
  - Myopathy [Unknown]
